FAERS Safety Report 20087666 (Version 1)
Quarter: 2021Q4

REPORT INFORMATION
  Report Type: Spontaneous
  Country: CN (occurrence: None)
  Receive Date: 20211118
  Receipt Date: 20211118
  Transmission Date: 20220303
  Serious: Yes (Other)
  Sender: FDA-Public Use
  Company Number: 2021A800106

PATIENT
  Age: 55 Year
  Sex: Male

DRUGS (3)
  1. GEFITINIB [Suspect]
     Active Substance: GEFITINIB
     Indication: Lung adenocarcinoma stage IV
     Route: 048
     Dates: start: 201504
  2. GEFITINIB [Suspect]
     Active Substance: GEFITINIB
     Indication: Lung adenocarcinoma stage IV
     Route: 048
     Dates: start: 201504
  3. TAGRISSO [Suspect]
     Active Substance: OSIMERTINIB
     Indication: Lung adenocarcinoma stage IV
     Route: 048
     Dates: start: 201606

REACTIONS (4)
  - Malignant neoplasm progression [Unknown]
  - Metastases to oesophagus [Recovering/Resolving]
  - Metastases to central nervous system [Not Recovered/Not Resolved]
  - Product use issue [Unknown]
